FAERS Safety Report 8932590 (Version 2)
Quarter: 2013Q1

REPORT INFORMATION
  Report Type: Spontaneous
  Country: NO (occurrence: None)
  Receive Date: 20121119
  Receipt Date: 20121203
  Transmission Date: 20140127
  Serious: Yes (Other)
  Sender: FDA-Public Use
  Company Number: DSA_60888_2012

PATIENT
  Sex: 0

DRUGS (7)
  1. METRONIDAZOLE (METRONIDAZOLE) [Suspect]
     Indication: BORRELIA INFECTION
     Dosage: (DF)
     Route: 048
  2. PLAQUENIL [Suspect]
     Indication: BORRELIA INFECTION
     Dosage: (DF)
     Route: 048
  3. AZITROMAX [Suspect]
     Indication: BORRELIA INFECTION
     Route: 048
  4. CLARITHROMYCIN [Suspect]
     Indication: BORRELIA INFECTION
     Route: 048
  5. AMOXICILLIN [Concomitant]
  6. SELEXID /00445302/ [Concomitant]
  7. COPAXONE [Concomitant]

REACTIONS (5)
  - Off label use [None]
  - Multiple-drug resistance [None]
  - Colitis [None]
  - Multiple sclerosis [None]
  - Clostridium difficile colitis [None]
